FAERS Safety Report 24264742 (Version 1)
Quarter: 2024Q3

REPORT INFORMATION
  Report Type: Spontaneous
  Country: JP (occurrence: JP)
  Receive Date: 20240829
  Receipt Date: 20240829
  Transmission Date: 20241017
  Serious: Yes (Other)
  Sender: REGENERON
  Company Number: JP-BAYER-2024A113281

PATIENT
  Age: 79 Year
  Sex: Female

DRUGS (1)
  1. EYLEA HD [Suspect]
     Active Substance: AFLIBERCEPT
     Indication: Neovascular age-related macular degeneration
     Dosage: UNK, SOLUTION FOR INJECTION, 114.3 MG/ML
     Route: 031

REACTIONS (4)
  - Retinal oedema [Unknown]
  - Retinal vascular disorder [Unknown]
  - Retinal vasculitis [Unknown]
  - Non-infectious endophthalmitis [Recovering/Resolving]
